FAERS Safety Report 8348958 (Version 2)
Quarter: 2013Q1

REPORT INFORMATION
  Report Type: Spontaneous
  Country: CL (occurrence: None)
  Receive Date: 20120110
  Receipt Date: 20130228
  Transmission Date: 20140127
  Serious: Yes (Death, Other)
  Sender: FDA-Public Use
  Company Number: MPS1-1000621

PATIENT
  Age: 9 Year
  Sex: Male

DRUGS (1)
  1. ALDURAZYME [Suspect]
     Indication: MUCOPOLYSACCHARIDOSIS I
     Dosage: 1.2 MG/KG, EVERY 15 DAYS,INTRAVENOUS
     Route: 042
     Dates: start: 20080626

REACTIONS (8)
  - Bronchopneumonia [None]
  - Neurological decompensation [None]
  - General physical health deterioration [None]
  - Sleep apnoea syndrome [None]
  - Treatment noncompliance [None]
  - Spleen disorder [None]
  - Splenomegaly [None]
  - Splenic infarction [None]
